FAERS Safety Report 21584436 (Version 1)
Quarter: 2022Q4

REPORT INFORMATION
  Report Type: Spontaneous
  Country: CH (occurrence: CH)
  Receive Date: 20221111
  Receipt Date: 20221111
  Transmission Date: 20230113
  Serious: Yes (Hospitalization, Disabling, Other)
  Sender: FDA-Public Use
  Company Number: None

PATIENT
  Age: 53 Year
  Sex: Female
  Weight: 62.7 kg

DRUGS (5)
  1. AROMASIN [Suspect]
     Active Substance: EXEMESTANE
     Dosage: 25 MG, 1X/DAY, 1-0-0-0
     Route: 048
     Dates: start: 20220725
  2. PIQRAY [Suspect]
     Active Substance: ALPELISIB
     Dosage: 300 MG, 1X/DAY, 0-2-0-0
     Route: 048
     Dates: start: 20220609, end: 20220830
  3. PIQRAY [Suspect]
     Active Substance: ALPELISIB
     Dosage: 150 MG, 2X/DAY (PRESCRIPTION IN REDUCED DOSE 1X 150 MG/D. PATIENT TOOK USUAL 2X150 MG/D)
     Route: 048
     Dates: start: 20220915, end: 20220917
  4. KCL HAUSMANN [Concomitant]
     Dosage: 20 MMOL, 3X/DAY
     Route: 048
     Dates: start: 20220830
  5. CALCIUM CARBONATE\CHOLECALCIFEROL [Concomitant]
     Active Substance: CALCIUM CARBONATE\CHOLECALCIFEROL
     Dosage: 500 MG /800 IE, 1-0-0
     Route: 048

REACTIONS (8)
  - Diarrhoea [Recovered/Resolved]
  - Colitis [Recovered/Resolved with Sequelae]
  - Diarrhoea [Recovering/Resolving]
  - Abdominal pain [Recovered/Resolved]
  - Vomiting [Recovered/Resolved]
  - Intussusception [Recovered/Resolved with Sequelae]
  - Gastrointestinal necrosis [Recovered/Resolved with Sequelae]
  - Large intestine infection [Recovered/Resolved with Sequelae]

NARRATIVE: CASE EVENT DATE: 20220818
